FAERS Safety Report 16057492 (Version 1)
Quarter: 2019Q1

REPORT INFORMATION
  Report Type: Report from Study
  Country: US (occurrence: US)
  Receive Date: 20190311
  Receipt Date: 20190311
  Transmission Date: 20190418
  Serious: Yes (Other)
  Sender: FDA-Public Use
  Company Number: US-JNJFOC-20180638666

PATIENT
  Age: 71 Year
  Sex: Female

DRUGS (8)
  1. IMBRUVICA [Suspect]
     Active Substance: IBRUTINIB
     Indication: CHRONIC LYMPHOCYTIC LEUKAEMIA
     Dosage: 560 MG, QD
     Route: 048
     Dates: start: 20180326
  2. VENTOLIN [Concomitant]
     Active Substance: ALBUTEROL SULFATE
  3. IMBRUVICA [Suspect]
     Active Substance: IBRUTINIB
     Indication: CHRONIC LYMPHOCYTIC LEUKAEMIA
     Route: 048
     Dates: start: 20180401
  4. CITALOPRAM [Concomitant]
     Active Substance: CITALOPRAM HYDROBROMIDE
  5. BUSPIRONE [Concomitant]
     Active Substance: BUSPIRONE HYDROCHLORIDE
  6. FLUTICASONE. [Concomitant]
     Active Substance: FLUTICASONE
  7. IMBRUVICA [Suspect]
     Active Substance: IBRUTINIB
     Indication: MARGINAL ZONE LYMPHOMA
     Dosage: 560 MG, QD
     Route: 048
     Dates: start: 20180326
  8. IMBRUVICA [Suspect]
     Active Substance: IBRUTINIB
     Indication: MARGINAL ZONE LYMPHOMA
     Route: 048
     Dates: start: 20180401

REACTIONS (20)
  - Foot fracture [Unknown]
  - Depression [Unknown]
  - Intentional overdose [Unknown]
  - Wound haemorrhage [Unknown]
  - Arthralgia [Not Recovered/Not Resolved]
  - Extra dose administered [Unknown]
  - Infection [Recovered/Resolved]
  - Acute oesophageal mucosal lesion [Unknown]
  - Fall [Recovered/Resolved]
  - Product dose omission [Unknown]
  - Cerumen impaction [Recovered/Resolved]
  - Arthritis [Not Recovered/Not Resolved]
  - Blood test abnormal [Unknown]
  - Dizziness [Not Recovered/Not Resolved]
  - Solar lentigo [Unknown]
  - Balance disorder [Not Recovered/Not Resolved]
  - Contusion [Unknown]
  - Headache [Unknown]
  - Chronic obstructive pulmonary disease [Not Recovered/Not Resolved]
  - Pain [Not Recovered/Not Resolved]

NARRATIVE: CASE EVENT DATE: 2018
